FAERS Safety Report 7764630-1 (Version None)
Quarter: 2011Q3

REPORT INFORMATION
  Report Type: 
  Country: None (occurrence: None)
  Receive Date: 20110921
  Receipt Date: 20110914
  Transmission Date: 20111222
  Serious: Yes (Hospitalization)
  Sender: FDA-Public Use
  Company Number: PHHY2011US14897

PATIENT
  Sex: Female
  Weight: 61.05 kg

DRUGS (8)
  1. EXJADE [Suspect]
     Indication: IRON OVERLOAD
     Dosage: 1000 MG, QD
     Route: 048
     Dates: start: 20090213
  2. EXJADE [Suspect]
     Indication: SICKLE CELL ANAEMIA
     Dosage: 2000 MG, DAILY
     Route: 048
  3. NORVASC [Concomitant]
  4. VITAMIN D [Concomitant]
  5. FOLIC ACID [Concomitant]
  6. OXYCODONE HCL [Concomitant]
  7. MORPHINE [Concomitant]
  8. LISINOPRIL [Concomitant]

REACTIONS (2)
  - ABDOMINAL DISCOMFORT [None]
  - SICKLE CELL ANAEMIA WITH CRISIS [None]
